FAERS Safety Report 17210735 (Version 3)
Quarter: 2020Q1

REPORT INFORMATION
  Report Type: Spontaneous
  Country: US (occurrence: US)
  Receive Date: 20191227
  Receipt Date: 20200207
  Transmission Date: 20200409
  Serious: Yes (Hospitalization)
  Sender: FDA-Public Use
  Company Number: US-VERTEX PHARMACEUTICALS-2019-013673

PATIENT
  Age: 16 Year
  Sex: Female
  Weight: 55.6 kg

DRUGS (21)
  1. FLONASE [Concomitant]
     Active Substance: FLUTICASONE PROPIONATE
     Dosage: UNK, BID
     Route: 045
  2. PULMICORT TURBUHALER [Concomitant]
     Active Substance: BUDESONIDE
  3. ALBUTEROL [SALBUTAMOL] [Concomitant]
     Active Substance: ALBUTEROL
     Indication: WHEEZING
  4. VITAMIN D3 [Concomitant]
     Active Substance: CHOLECALCIFEROL
     Dosage: 1 DOSAGE FORM, QD
     Route: 048
  5. ZITHROMAX [Concomitant]
     Active Substance: AZITHROMYCIN DIHYDRATE
     Dosage: 500 MG, TID
  6. VITAMIN E NATURAL [TOCOPHEROL] [Concomitant]
  7. GLUCAGON. [Concomitant]
     Active Substance: GLUCAGON
  8. SYMDEKO [Suspect]
     Active Substance: IVACAFTOR\TEZACAFTOR
     Indication: CYSTIC FIBROSIS
     Dosage: 100/150;150MG, 1 YELLOW TABLET IN MORNING AND 1 BLUE TABLET IN EVENING, APPROXIMATELY 12 HOURS APART
     Route: 048
     Dates: start: 201907
  9. PULMOZYME [Concomitant]
     Active Substance: DORNASE ALFA
     Dosage: 2.5 MG, QD
  10. BETHKIS [Concomitant]
     Active Substance: TOBRAMYCIN
  11. ALBUTEROL [SALBUTAMOL] [Concomitant]
     Active Substance: ALBUTEROL
     Indication: RESPIRATORY DISTRESS
  12. LANTUS [Concomitant]
     Active Substance: INSULIN GLARGINE
  13. ZYRTEC [Concomitant]
     Active Substance: CETIRIZINE HYDROCHLORIDE
     Dosage: 10 MG, QD
     Route: 048
  14. DULERA [Concomitant]
     Active Substance: FORMOTEROL FUMARATE DIHYDRATE\MOMETASONE FUROATE
     Dosage: UNK, BID
     Route: 055
  15. CALCIUM [Concomitant]
     Active Substance: CALCIUM
     Dosage: 500 MG, TID
  16. CREON [Concomitant]
     Active Substance: PANCRELIPASE AMYLASE\PANCRELIPASE LIPASE\PANCRELIPASE PROTEASE
  17. PERIACTIN [Concomitant]
     Active Substance: CYPROHEPTADINE HYDROCHLORIDE
     Dosage: 4 MG, BID
     Route: 048
  18. ALBUTEROL [SALBUTAMOL] [Concomitant]
     Active Substance: ALBUTEROL
     Indication: COUGH
     Dosage: UNK, BID
  19. HUMALOG JUNIOR KWIKPEN [Concomitant]
     Active Substance: INSULIN LISPRO
  20. PROAIR HFA [Concomitant]
     Active Substance: ALBUTEROL SULFATE
     Dosage: UNK, BID
     Route: 055
  21. SODIUM CHLORIDE. [Concomitant]
     Active Substance: SODIUM CHLORIDE
     Dosage: UNK, BID
     Route: 055

REACTIONS (4)
  - Infective pulmonary exacerbation of cystic fibrosis [Recovered/Resolved]
  - Pneumonia pseudomonal [Recovering/Resolving]
  - Bronchiectasis [Recovered/Resolved]
  - Pneumonia staphylococcal [Recovering/Resolving]

NARRATIVE: CASE EVENT DATE: 20191219
